FAERS Safety Report 13578397 (Version 1)
Quarter: 2017Q2

REPORT INFORMATION
  Report Type: Spontaneous
  Country: GB (occurrence: GB)
  Receive Date: 20170524
  Receipt Date: 20170524
  Transmission Date: 20170830
  Serious: Yes (Hospitalization)
  Sender: FDA-Public Use
  Company Number: GB-ABBVIE-17P-167-1986763-00

PATIENT
  Age: 46 Year
  Sex: Female

DRUGS (1)
  1. EPILIM [Suspect]
     Active Substance: VALPROATE SODIUM
     Indication: EPILEPSY
     Route: 065

REACTIONS (3)
  - Gastrointestinal disorder [Unknown]
  - Unevaluable event [Unknown]
  - Feeling abnormal [Unknown]

NARRATIVE: CASE EVENT DATE: 2017
